FAERS Safety Report 19073327 (Version 1)
Quarter: 2021Q1

REPORT INFORMATION
  Report Type: Spontaneous
  Country: QA (occurrence: QA)
  Receive Date: 20210330
  Receipt Date: 20210330
  Transmission Date: 20210420
  Serious: Yes (Death, Hospitalization, Other)
  Sender: FDA-Public Use
  Company Number: QA-SUN PHARMACEUTICAL INDUSTRIES LTD-2021R1-288073

PATIENT
  Age: 60 Year
  Sex: Male

DRUGS (4)
  1. TOCILIZUMAB. [Suspect]
     Active Substance: TOCILIZUMAB
     Dosage: 600 MILLIGRAM, OD
     Route: 065
  2. METHYLPREDNISOLONE. [Suspect]
     Active Substance: METHYLPREDNISOLONE
     Indication: COVID-19
     Route: 065
  3. HYDROCORTISONE. [Suspect]
     Active Substance: HYDROCORTISONE
     Indication: COVID-19
     Route: 065
  4. TOCILIZUMAB. [Suspect]
     Active Substance: TOCILIZUMAB
     Indication: CYTOKINE STORM
     Dosage: 400 MILLIGRAM, OD
     Route: 065

REACTIONS (4)
  - Cryptococcosis [Fatal]
  - Systemic candida [Unknown]
  - Sepsis [Fatal]
  - Acute kidney injury [Unknown]
